FAERS Safety Report 23501564 (Version 1)
Quarter: 2024Q1

REPORT INFORMATION
  Report Type: Spontaneous
  Country: CN (occurrence: CN)
  Receive Date: 20240208
  Receipt Date: 20240208
  Transmission Date: 20240410
  Serious: Yes (Disabling, Other)
  Sender: FDA-Public Use
  Company Number: None

PATIENT
  Sex: Female
  Weight: 73 kg

DRUGS (9)
  1. CYCLOPHOSPHAMIDE [Suspect]
     Active Substance: CYCLOPHOSPHAMIDE
     Indication: Breast cancer female
     Dosage: 1.1 G, Q2W, D1, FIRST AND SECOND CYCLES OF CHEMOTHERAPY
     Route: 041
  2. CYCLOPHOSPHAMIDE [Suspect]
     Active Substance: CYCLOPHOSPHAMIDE
     Dosage: 1.1 G, Q2W, AS PART OF FOURTH CYCLE OF INTENSIVE EC REGIMEN, D1
     Route: 041
     Dates: start: 20240121, end: 20240121
  3. MESNA [Suspect]
     Active Substance: MESNA
     Dosage: UNK, START DATE: JAN-2024
     Route: 065
  4. EPIRUBICIN HYDROCHLORIDE [Suspect]
     Active Substance: EPIRUBICIN HYDROCHLORIDE
     Indication: Breast cancer female
     Dosage: 180 MG, Q2W, D1, FIRST AND SECOND CYCLES OF CHEMOTHERAPY
     Route: 041
  5. EPIRUBICIN HYDROCHLORIDE [Suspect]
     Active Substance: EPIRUBICIN HYDROCHLORIDE
     Dosage: 180 MG, Q2W, AS PART OF FOURTH CYCLE OF INTENSIVE EC REGIMEN, D1
     Route: 041
     Dates: start: 20240121, end: 20240121
  6. ONDANSETRON [Suspect]
     Active Substance: ONDANSETRON
     Indication: Prophylaxis of nausea and vomiting
     Dosage: UNK, START DATE: JAN-2024
     Route: 065
  7. METOCLOPRAMIDE [Suspect]
     Active Substance: METOCLOPRAMIDE
     Indication: Prophylaxis of nausea and vomiting
     Dosage: UNK, START DATE: JAN-2024
     Route: 065
  8. OLANZAPINE [Suspect]
     Active Substance: OLANZAPINE
     Indication: Prophylaxis of nausea and vomiting
     Dosage: UNK, START DATE: JAN-2024
     Route: 065
  9. MOLGRAMOSTIM [Suspect]
     Active Substance: MOLGRAMOSTIM
     Dosage: UNK, START DATE: JAN-2024
     Route: 065

REACTIONS (2)
  - Granulocytopenia [Unknown]
  - Leukopenia [Unknown]
